FAERS Safety Report 5858534-9 (Version None)
Quarter: 2008Q3

REPORT INFORMATION
  Report Type: 
  Country: None (occurrence: None)
  Receive Date: 20080818
  Receipt Date: 20080606
  Transmission Date: 20090109
  Serious: No
  Sender: FDA-Public Use
  Company Number: TPA2008A00859

PATIENT
  Age: 51 Year
  Sex: Male
  Weight: 75.2971 kg

DRUGS (5)
  1. ROZEREM [Suspect]
     Indication: INSOMNIA
     Dosage: 8 MG, QHS, PER ORAL
     Route: 048
  2. CLONIDINE [Concomitant]
  3. CLONAZEPAM [Concomitant]
  4. UNKNOWN BLOOD PRESSURE MEDICATION(ANTIHYPERTENSIVES) [Concomitant]
  5. UNKNOWN SLEEP MEDICATIONS(ALL OTHER THERAPEUTIC PRODUCTS) [Concomitant]

REACTIONS (7)
  - CONDITION AGGRAVATED [None]
  - FATIGUE [None]
  - MEMORY IMPAIRMENT [None]
  - MIDDLE INSOMNIA [None]
  - NIGHTMARE [None]
  - POOR QUALITY SLEEP [None]
  - WEIGHT DECREASED [None]
